FAERS Safety Report 20968964 (Version 1)
Quarter: 2022Q2

REPORT INFORMATION
  Report Type: Spontaneous
  Country: US (occurrence: US)
  Receive Date: 20220616
  Receipt Date: 20220616
  Transmission Date: 20220721
  Serious: No
  Sender: FDA-Public Use
  Company Number: US-PFIZER INC-202200840005

PATIENT
  Age: 33 Year
  Sex: Female

DRUGS (2)
  1. PAXLOVID [Suspect]
     Active Substance: NIRMATRELVIR\RITONAVIR
     Indication: COVID-19 treatment
     Dosage: TOOK 4 NIRMATRELVIR TABLETS AND 2 RITONAVIR TABLETS
  2. PAXLOVID [Suspect]
     Active Substance: NIRMATRELVIR\RITONAVIR
     Dosage: 2 OF THE NIRMATRELVIR AND 1 OF THE RITONAVIR

REACTIONS (1)
  - Extra dose administered [Unknown]
